FAERS Safety Report 5143693-6 (Version None)
Quarter: 2006Q4

REPORT INFORMATION
  Report Type: 
  Country: None (occurrence: None)
  Receive Date: 20061103
  Receipt Date: 20061026
  Transmission Date: 20070319
  Serious: Yes (Life-Threatening, Hospitalization)
  Sender: FDA-Public Use
  Company Number: DE-ABBOTT-06P-062-0348112-00

PATIENT
  Sex: Male
  Weight: 86 kg

DRUGS (5)
  1. HUMIRA [Suspect]
     Indication: PSORIATIC ARTHROPATHY
     Route: 058
     Dates: start: 20051201, end: 20060615
  2. HUMIRA [Suspect]
     Route: 058
     Dates: start: 20061025
  3. METHOTREXATE SODIUM [Concomitant]
     Indication: PSORIATIC ARTHROPATHY
     Dates: start: 20020701, end: 20060601
  4. GLUCOCORTICOIDS [Concomitant]
     Indication: PSORIATIC ARTHROPATHY
     Route: 048
     Dates: start: 20060701
  5. VALORON [Concomitant]
     Indication: PSORIATIC ARTHROPATHY
     Route: 048
     Dates: start: 20060901

REACTIONS (4)
  - LARGE INTESTINE PERFORATION [None]
  - PERITONITIS [None]
  - UROSEPSIS [None]
  - WOUND DEHISCENCE [None]
